FAERS Safety Report 6845525-4 (Version None)
Quarter: 2010Q3

REPORT INFORMATION
  Report Type: 
  Country: None (occurrence: None)
  Receive Date: 20100713
  Receipt Date: 20100630
  Transmission Date: 20110219
  Serious: Yes (Death, Life-Threatening, Hospitalization, Other)
  Sender: FDA-Public Use
  Company Number: POMP-1000663

PATIENT
  Age: 23 Month
  Sex: Female
  Weight: 11.8 kg

DRUGS (1)
  1. MYOZYME [Suspect]
     Indication: GLYCOGEN STORAGE DISEASE TYPE II
     Dosage: 20 MG/KG, Q2W, INTRAVENOUS
     Route: 042
     Dates: start: 20080117

REACTIONS (20)
  - BACTERIAL TRACHEITIS [None]
  - BRONCHITIS VIRAL [None]
  - COLLAPSE OF LUNG [None]
  - DISEASE COMPLICATION [None]
  - DYSMYELINATION [None]
  - ELECTROCARDIOGRAM ST SEGMENT DEPRESSION [None]
  - GLYCOGEN STORAGE DISEASE TYPE II [None]
  - HYPERCAPNIA [None]
  - IMMOBILE [None]
  - MOBILITY DECREASED [None]
  - MUSCULAR WEAKNESS [None]
  - NERVE INJURY [None]
  - POLYNEUROPATHY [None]
  - PSEUDOMONAS INFECTION [None]
  - RESPIRATORY FAILURE [None]
  - TRACHEITIS [None]
  - TREATMENT FAILURE [None]
  - UNRESPONSIVE TO STIMULI [None]
  - VIRAL UPPER RESPIRATORY TRACT INFECTION [None]
  - VOMITING [None]
